FAERS Safety Report 6217706-4 (Version None)
Quarter: 2009Q2

REPORT INFORMATION
  Report Type: 
  Country: None (occurrence: None)
  Receive Date: 20090608
  Receipt Date: 20090528
  Transmission Date: 20091009
  Serious: Yes (Disabling, Other)
  Sender: FDA-Public Use
  Company Number: US-PFIZER INC-2005115990

PATIENT
  Sex: Female
  Weight: 66 kg

DRUGS (7)
  1. PROVERA [Suspect]
     Indication: HORMONE REPLACEMENT THERAPY
     Dosage: 2.5 MG, UNK
     Route: 048
     Dates: start: 19990211, end: 19990526
  2. PREMARIN [Suspect]
     Indication: HORMONE REPLACEMENT THERAPY
     Dosage: 0.625 MG, UNK
     Dates: start: 19990211, end: 20020529
  3. PREMARIN [Suspect]
     Dosage: 0.3 MG, UNK
     Dates: start: 19990211, end: 20020529
  4. MEDROXYPROGESTERONE ACETATE [Suspect]
     Indication: HORMONE REPLACEMENT THERAPY
     Dosage: 2.5 MG, UNK
     Route: 048
     Dates: start: 19990526, end: 20020529
  5. PROVENTIL GENTLEHALER [Concomitant]
     Indication: ASTHMA
     Dosage: UNK
     Dates: start: 19960121
  6. EVISTA [Concomitant]
     Indication: OSTEOPOROSIS
     Dosage: UNK
     Dates: start: 20020529, end: 20040901
  7. ALBUTEROL [Concomitant]
     Indication: ASTHMA
     Dosage: UNK
     Dates: start: 19960121

REACTIONS (1)
  - BREAST CANCER FEMALE [None]
